FAERS Safety Report 5122019-8 (Version None)
Quarter: 2006Q4

REPORT INFORMATION
  Report Type: 
  Country: None (occurrence: None)
  Receive Date: 20061006
  Receipt Date: 20060518
  Transmission Date: 20070319
  Serious: Yes (Hospitalization)
  Sender: FDA-Public Use
  Company Number: FR-SANOFI-SYNTHELABO-A02200601307

PATIENT
  Age: 73 Year
  Sex: Female
  Weight: 50 kg

DRUGS (18)
  1. OROCAL [Concomitant]
     Route: 048
  2. LEXOMIL [Concomitant]
     Route: 048
  3. ATHYMIL [Concomitant]
     Route: 048
  4. KALEORID [Concomitant]
     Route: 048
  5. OMEPRAZOLE [Concomitant]
     Route: 048
  6. SOLUPRED [Concomitant]
     Route: 048
  7. CARDENSIEL [Concomitant]
     Route: 048
  8. ZOCOR [Concomitant]
     Route: 048
  9. DOXYCYCLINE [Concomitant]
     Route: 048
     Dates: start: 20060314, end: 20060502
  10. DOXYCYCLINE [Concomitant]
     Route: 048
     Dates: start: 20060530
  11. TRIATEC [Suspect]
     Indication: ESSENTIAL HYPERTENSION
     Route: 048
     Dates: end: 20060411
  12. TRIATEC [Suspect]
     Dosage: 3.75 MG
     Route: 048
     Dates: start: 20060419
  13. LASIX [Suspect]
     Indication: ESSENTIAL HYPERTENSION
     Route: 048
     Dates: end: 20060411
  14. LASIX [Suspect]
     Dosage: 40 MG
     Route: 048
     Dates: start: 20060419
  15. PLAQUENIL [Suspect]
     Indication: Q FEVER
     Route: 048
     Dates: start: 20060314, end: 20060411
  16. PLAQUENIL [Suspect]
     Dosage: 400 MG
     Route: 048
     Dates: start: 20060419, end: 20060502
  17. PLAQUENIL [Suspect]
     Dosage: 400 MG
     Route: 048
     Dates: start: 20060530, end: 20060801
  18. PLAQUENIL [Suspect]
     Route: 048
     Dates: start: 20060801

REACTIONS (4)
  - DIARRHOEA [None]
  - DRUG LEVEL INCREASED [None]
  - RENAL FAILURE ACUTE [None]
  - VOMITING [None]
